FAERS Safety Report 16677665 (Version 1)
Quarter: 2019Q3

REPORT INFORMATION
  Report Type: Report from Study
  Country: US (occurrence: US)
  Receive Date: 20190807
  Receipt Date: 20190807
  Transmission Date: 20191004
  Serious: Yes (Death, Hospitalization, Other)
  Sender: FDA-Public Use
  Company Number: US-TAIHO ONCOLOGY  INC-EU-2018-01918

PATIENT
  Age: 73 Year
  Sex: Male
  Weight: 70.37 kg

DRUGS (26)
  1. LONSURF [Suspect]
     Active Substance: TIPIRACIL HYDROCHLORIDE\TRIFLURIDINE
     Indication: PSEUDOMYXOMA PERITONEI
     Dosage: CYCLE 1 UNTIL AN UNKNOWN CYCLE
     Route: 048
     Dates: start: 201602, end: 201702
  2. MAG OX [Concomitant]
     Active Substance: MAGNESIUM OXIDE
  3. ALBUTEROL. [Concomitant]
     Active Substance: ALBUTEROL
  4. LONSURF [Suspect]
     Active Substance: TIPIRACIL HYDROCHLORIDE\TRIFLURIDINE
     Indication: APPENDIX CANCER
     Dosage: CYCLES UNKNOWN
     Route: 048
     Dates: start: 201702, end: 201804
  5. BUMEX [Concomitant]
     Active Substance: BUMETANIDE
  6. KLOR-CON [Concomitant]
     Active Substance: POTASSIUM CHLORIDE
  7. LEVOTHYROXINE. [Concomitant]
     Active Substance: LEVOTHYROXINE
  8. OMEPRAZOLE. [Concomitant]
     Active Substance: OMEPRAZOLE
  9. VITAMIN D3 [Concomitant]
     Active Substance: CHOLECALCIFEROL
  10. LONSURF [Suspect]
     Active Substance: TIPIRACIL HYDROCHLORIDE\TRIFLURIDINE
     Dosage: CURRENT CYCLE STARTED ON 06/MAY/2019.
     Route: 048
     Dates: start: 20170412, end: 2019
  11. ALDACTONE [Concomitant]
     Active Substance: SPIRONOLACTONE
  12. RANEXA [Concomitant]
     Active Substance: RANOLAZINE
  13. COUMADIN [Concomitant]
     Active Substance: WARFARIN SODIUM
     Dosage: AVERAGE DOSE.
  14. ZOFRAN [Concomitant]
     Active Substance: ONDANSETRON HYDROCHLORIDE
  15. METOPROLOL. [Concomitant]
     Active Substance: METOPROLOL
  16. ATORVASTATIN [Concomitant]
     Active Substance: ATORVASTATIN
  17. MAG OX [Concomitant]
     Active Substance: MAGNESIUM OXIDE
  18. VITAMIN B12 [Concomitant]
     Active Substance: CYANOCOBALAMIN
     Dosage: NI
  19. BUMEX [Concomitant]
     Active Substance: BUMETANIDE
     Dosage: 4 MG QAM AND 3 MG QPM
  20. BUMEX [Concomitant]
     Active Substance: BUMETANIDE
     Route: 042
  21. NOVOLOG [Concomitant]
     Active Substance: INSULIN ASPART
     Dosage: INSULIN PUMP
  22. BABY ASA [Concomitant]
     Active Substance: ASPIRIN
  23. KLOR-CON [Concomitant]
     Active Substance: POTASSIUM CHLORIDE
  24. ALDACTONE [Concomitant]
     Active Substance: SPIRONOLACTONE
  25. ASPIRIN 81 [Concomitant]
     Active Substance: ASPIRIN
  26. LORAZEPAM. [Concomitant]
     Active Substance: LORAZEPAM

REACTIONS (6)
  - Asthenia [Unknown]
  - Anaemia [Not Recovered/Not Resolved]
  - Death [Fatal]
  - Mitral valve incompetence [Unknown]
  - Renal failure [Unknown]
  - Right ventricular failure [Unknown]

NARRATIVE: CASE EVENT DATE: 2018
